FAERS Safety Report 10985765 (Version 1)
Quarter: 2015Q1

REPORT INFORMATION
  Report Type: Spontaneous
  Country: US (occurrence: None)
  Receive Date: 20150324
  Receipt Date: 20150324
  Transmission Date: 20150721
  Serious: Yes (Hospitalization)
  Sender: FDA-Public Use
  Company Number: STPI000239

PATIENT
  Age: 13 Year
  Weight: 107.2 kg

DRUGS (4)
  1. ACETAMINOPHEN (PARACETAMOL) [Concomitant]
     Active Substance: ACETAMINOPHEN
  2. ONDANSETRON. [Concomitant]
     Active Substance: ONDANSETRON
  3. ONCASPAR [Suspect]
     Active Substance: PEGASPARGASE
     Route: 042
     Dates: start: 20131222, end: 20131222
  4. VINCRISTINE SULFATE. [Concomitant]
     Active Substance: VINCRISTINE SULFATE

REACTIONS (1)
  - Anaphylactic reaction [None]

NARRATIVE: CASE EVENT DATE: 20140311
